FAERS Safety Report 7020388-5 (Version None)
Quarter: 2010Q3

REPORT INFORMATION
  Report Type: 
  Country: None (occurrence: None)
  Receive Date: 20100929
  Receipt Date: 20100922
  Transmission Date: 20110219
  Serious: Yes (Hospitalization)
  Sender: FDA-Public Use
  Company Number: ZA-SANOFI-AVENTIS-2010SA054056

PATIENT
  Age: 25 Year
  Sex: Male
  Weight: 48.1 kg

DRUGS (7)
  1. RIFAMPICIN [Suspect]
     Indication: PULMONARY TUBERCULOSIS
     Route: 042
     Dates: start: 20100802, end: 20100906
  2. PYRAZINAMIDE [Suspect]
     Indication: PULMONARY TUBERCULOSIS
     Route: 042
     Dates: start: 20100802, end: 20100906
  3. MOXIFLOXACIN [Suspect]
     Indication: PULMONARY TUBERCULOSIS
     Route: 042
     Dates: start: 20100802, end: 20100906
  4. ISONIAZID [Suspect]
     Indication: PULMONARY TUBERCULOSIS
     Route: 042
     Dates: start: 20100802, end: 20100906
  5. ETHAMBUTOL HYDROCHLORIDE [Suspect]
     Indication: PULMONARY TUBERCULOSIS
     Route: 042
     Dates: start: 20100802, end: 20100906
  6. PYRIDOXINE HCL [Concomitant]
     Indication: PROPHYLAXIS
     Dates: start: 20100802
  7. VITAMIN B [Concomitant]
     Indication: ROUTINE HEALTH MAINTENANCE
     Route: 048
     Dates: start: 20100801

REACTIONS (1)
  - OPTIC NEURITIS [None]
